FAERS Safety Report 16312083 (Version 1)
Quarter: 2019Q2

REPORT INFORMATION
  Report Type: Spontaneous
  Country: US (occurrence: US)
  Receive Date: 20190515
  Receipt Date: 20190515
  Transmission Date: 20190711
  Serious: Yes (Hospitalization)
  Sender: FDA-Public Use
  Company Number: US-UNITED THERAPEUTICS-UNT-2019-008516

PATIENT
  Age: 37 Year
  Sex: Female

DRUGS (2)
  1. REMODULIN [Suspect]
     Active Substance: TREPROSTINIL
     Indication: PULMONARY ARTERIAL HYPERTENSION
     Dosage: 0.0322 ?G/KG, CONTINUING
     Route: 058
     Dates: start: 20190301
  2. REMODULIN [Suspect]
     Active Substance: TREPROSTINIL
     Dosage: 0.0364 ?G/KG, CONTINUING
     Route: 058

REACTIONS (2)
  - Fluid retention [Unknown]
  - Syncope [Unknown]

NARRATIVE: CASE EVENT DATE: 20190510
